FAERS Safety Report 6399933-9 (Version None)
Quarter: 2009Q4

REPORT INFORMATION
  Report Type: 
  Country: None (occurrence: None)
  Receive Date: 20091014
  Receipt Date: 20070327
  Transmission Date: 20100525
  Serious: Yes (Other)
  Sender: FDA-Public Use
  Company Number: US-ASTRAZENECA-2006UW08136

PATIENT
  Age: 13324 Day
  Sex: Male
  Weight: 100.7 kg

DRUGS (26)
  1. SEROQUEL [Suspect]
     Indication: DEPRESSION
     Route: 048
     Dates: start: 20030401, end: 20050614
  2. SEROQUEL [Suspect]
     Dosage: 50MG TO 100MG
     Route: 048
     Dates: start: 20030401
  3. SEROQUEL [Suspect]
     Dosage: 200MG TO 300MG DAILY
     Route: 048
     Dates: start: 20041215
  4. ZYPREXA [Concomitant]
     Dates: start: 19970101, end: 20050101
  5. XANAX [Concomitant]
     Indication: ANXIETY
     Dosage: 0.5MG TO 3MG
     Route: 048
     Dates: start: 19970305
  6. XANAX [Concomitant]
     Dates: start: 19970101, end: 20060101
  7. LASIX [Concomitant]
     Dosage: 20MG TO 40MG
     Route: 048
     Dates: start: 20030101
  8. ZERIT [Concomitant]
     Indication: HIV INFECTION
     Dosage: 40MG TO 80MG
     Dates: start: 19960910
  9. ZERIT [Concomitant]
     Indication: ACQUIRED IMMUNODEFICIENCY SYNDROME
     Dosage: 40MG TO 80MG
     Dates: start: 19960910
  10. EPIVIR [Concomitant]
     Indication: HIV INFECTION
     Dosage: 150MG TO 300MG
     Dates: start: 19960130, end: 20040713
  11. EPIVIR [Concomitant]
     Indication: ACQUIRED IMMUNODEFICIENCY SYNDROME
     Dosage: 150MG TO 300MG
     Dates: start: 19960130, end: 20040713
  12. EFFEXOR XR [Concomitant]
     Dosage: 150MG TO 300MG
     Route: 048
     Dates: start: 19990101
  13. KEPPRA [Concomitant]
     Indication: NEURALGIA
     Dosage: 750MG TO 2000MG
     Route: 048
     Dates: start: 20021201
  14. VICODINE [Concomitant]
     Indication: SCIATICA
     Dates: start: 19960130
  15. VICODINE [Concomitant]
     Indication: PAIN
     Dates: start: 19960130
  16. AMBIEN [Concomitant]
     Indication: INSOMNIA
     Route: 048
     Dates: start: 19960910
  17. VIOXX [Concomitant]
     Dates: start: 20030101
  18. PREVACID [Concomitant]
     Dosage: 30MG TO 60 MG
     Route: 048
     Dates: start: 20020801
  19. VIRAMINE [Concomitant]
     Dates: start: 19970101
  20. LOPID [Concomitant]
     Dates: start: 20031016
  21. AVANDIA [Concomitant]
     Dates: start: 20070124
  22. METFORMIN HYDROCHLORIDE [Concomitant]
     Route: 048
     Dates: start: 20060110
  23. VERAPAMIL ER [Concomitant]
     Dosage: 182MG TO 240MG
     Route: 046
     Dates: start: 20040722
  24. VIRACEPT [Concomitant]
     Dosage: 625MG, 2 TABS TWO TIMES A DAY
     Route: 048
     Dates: start: 20050212
  25. CYMBALTA [Concomitant]
     Dosage: 60MG, 2 TABS ONCE A DAY
     Dates: start: 20060419
  26. PROCHLORPERAZINE [Concomitant]
     Dosage: 10MG SPANSULE AS REQUIRED
     Dates: start: 19961203

REACTIONS (13)
  - ANAL CANCER STAGE 0 [None]
  - B-CELL LYMPHOMA [None]
  - BLOOD CHOLESTEROL INCREASED [None]
  - BONE NEOPLASM MALIGNANT [None]
  - COLON CANCER [None]
  - DIABETES MELLITUS [None]
  - DRUG INEFFECTIVE [None]
  - NAUSEA [None]
  - NEOPLASM MALIGNANT [None]
  - NEUROPATHY PERIPHERAL [None]
  - OBESITY [None]
  - RECTAL CANCER [None]
  - TYPE 2 DIABETES MELLITUS [None]
